FAERS Safety Report 7630376-3 (Version None)
Quarter: 2011Q3

REPORT INFORMATION
  Report Type: 
  Country: None (occurrence: None)
  Receive Date: 20110722
  Receipt Date: 20110701
  Transmission Date: 20111222
  Serious: Yes (Death, Hospitalization)
  Sender: FDA-Public Use
  Company Number: US-GLAXOSMITHKLINE-A0870623A

PATIENT
  Sex: Female

DRUGS (8)
  1. BONIVA [Concomitant]
  2. CARDIZEM [Concomitant]
  3. VIOXX [Concomitant]
  4. AVANDIA [Suspect]
     Indication: DIABETES MELLITUS
     Dosage: 4MG PER DAY
     Route: 048
     Dates: start: 20020815, end: 20070101
  5. ADVAIR DISKUS 100/50 [Concomitant]
  6. ACIPHEX [Concomitant]
  7. NORVASC [Concomitant]
  8. HYTRIN [Concomitant]

REACTIONS (2)
  - CARDIAC FAILURE CONGESTIVE [None]
  - ANAEMIA [None]
